FAERS Safety Report 8523698-5 (Version None)
Quarter: 2012Q3

REPORT INFORMATION
  Report Type: 
  Country: None (occurrence: None)
  Receive Date: 20120720
  Receipt Date: 20120711
  Transmission Date: 20120928
  Serious: Yes (Other)
  Sender: FDA-Public Use
  Company Number: SE-JNJFOC-20111204581

PATIENT
  Age: 46 Year
  Sex: Female

DRUGS (9)
  1. IBUMETIN [Concomitant]
     Route: 048
  2. REMICADE [Suspect]
     Indication: SPONDYLITIS
     Dosage: AS NECESSARY
     Route: 042
     Dates: start: 20040324, end: 20111017
  3. PREDNISOLONE [Concomitant]
     Route: 048
     Dates: start: 20040324, end: 20081201
  4. COX-1 ANTAGONIST [Concomitant]
     Route: 065
     Dates: start: 20050516, end: 20051114
  5. COX-1 ANTAGONIST [Concomitant]
     Route: 065
     Dates: start: 20081201
  6. IMURAN [Concomitant]
     Route: 065
     Dates: start: 20040324, end: 20081201
  7. IMURAN [Concomitant]
     Route: 065
  8. IMURAN [Concomitant]
     Route: 065
     Dates: start: 20090316
  9. ENBREL [Concomitant]
     Route: 065
     Dates: start: 20040823, end: 20041101

REACTIONS (5)
  - BALANCE DISORDER [None]
  - DRUG INEFFECTIVE [None]
  - HYPOTONIA [None]
  - PLEOCYTOSIS [None]
  - GRAND MAL CONVULSION [None]
